FAERS Safety Report 6305804 (Version 10)
Quarter: 2014Q2

REPORT INFORMATION
  Report Type: Report from Study
  Country: JP (occurrence: JP)
  Receive Date: 20070507
  Receipt Date: 20140508
  Transmission Date: 20141212
  Serious: Yes (Life-Threatening, Disabling)
  Sender: FDA-Public Use
  Company Number: JP-BRISTOL-MYERS SQUIBB COMPANY-13769260

PATIENT
  Age: 24 Year
  Sex: Male

DRUGS (11)
  1. STOCRIN TABS [Suspect]
     Indication: HIV INFECTION
     Dosage: 24-25JUL00(2D)-600MG?25SEP00-2OCT00(8D)
     Route: 048
     Dates: start: 20000724, end: 20001002
  2. ZERIT CAPS [Suspect]
     Indication: HIV INFECTION
     Dosage: 25AUG97-27FEB98(187D)?27FEB-03AUG98(158)?3AUG-9NOV(99)?9NOV98-19JN99(223)?25DC00-20OC01(300D)
     Route: 048
     Dates: start: 19970825, end: 20011020
  3. CRIXIVAN [Suspect]
     Indication: HIV INFECTION
     Route: 048
     Dates: start: 20000318, end: 20000524
  4. ZIAGEN [Suspect]
     Dosage: 24JUL-25JUL00(2D)600MG?20OCT-27OCT01(8D)600MG?INT 25JUL00
     Route: 048
     Dates: start: 20000724, end: 20011027
  5. INVIRASE [Suspect]
     Indication: HIV INFECTION
     Dosage: CAPS; 19JUN99-18MAR00(274D)?24MAY-24DEC00(215D)800MG
     Route: 048
     Dates: start: 19990619, end: 20010331
  6. NORVIR [Suspect]
     Indication: HIV INFECTION
     Dosage: 19JUN-31OCT99;400MG?1NOV99-24DEC00;420D?100MG/D 24APR05-19SEP08;1244D?200MG/D 20SEP08-CONT
     Route: 048
     Dates: start: 19990619, end: 20080919
  7. KALETRA [Suspect]
     Indication: HIV INFECTION
     Route: 048
     Dates: start: 20001225, end: 20040424
  8. EPIVIR [Suspect]
     Indication: HIV INFECTION
     Dosage: TAB
     Route: 048
     Dates: start: 20040515, end: 20080919
  9. CROSS EIGHT M [Concomitant]
     Indication: HAEMARTHROSIS
     Dosage: 1DF=INJ
     Route: 042
     Dates: start: 19991101, end: 20120401
  10. VIDEX TABS [Suspect]
     Indication: HIV INFECTION
     Dosage: 19DEC94-7MAR97(125MG)810D?8MAR97-21JUL01(300MG)1597D?22JUL-14MAY04(400MG)1028D
     Route: 048
     Dates: start: 19941119, end: 20040514
  11. VIDEX EC CAPS [Suspect]
     Indication: HIV INFECTION
     Route: 048
     Dates: start: 20010721, end: 20040514

REACTIONS (3)
  - Dizziness [Recovering/Resolving]
  - Palpitations [Recovering/Resolving]
  - Pulmonary hypertension [Not Recovered/Not Resolved]
